FAERS Safety Report 9596918 (Version 2)
Quarter: 2013Q4

REPORT INFORMATION
  Report Type: Spontaneous
  Country: BR (occurrence: BR)
  Receive Date: 20131004
  Receipt Date: 20131004
  Transmission Date: 20140711
  Serious: Yes (Hospitalization, Other)
  Sender: FDA-Public Use
  Company Number: BR-TEVA-433090ISR

PATIENT
  Age: 65 Year
  Sex: Female
  Weight: 66 kg

DRUGS (7)
  1. COPAXONE [Suspect]
     Indication: MULTIPLE SCLEROSIS
     Dosage: 20 MILLIGRAM DAILY;
     Route: 058
     Dates: start: 20100625
  2. GLYCINE MAX L. [Concomitant]
     Route: 048
  3. RIVOTRIL [Concomitant]
     Dosage: 2 MILLIGRAM DAILY;
     Route: 048
  4. PREDNISONE [Concomitant]
     Dosage: DOSE: 1/2 TABLET OF 5 MG
     Route: 048
  5. FLUOXETINE [Concomitant]
     Dosage: 20 MILLIGRAM DAILY;
     Route: 048
  6. RANITIDINE [Concomitant]
     Route: 048
  7. DORFLEX [Concomitant]
     Indication: PAIN
     Route: 048

REACTIONS (7)
  - Multiple sclerosis relapse [Recovering/Resolving]
  - Ageusia [Recovered/Resolved]
  - Influenza [Recovered/Resolved]
  - Hypoaesthesia [Recovering/Resolving]
  - Ear pain [Recovering/Resolving]
  - Balance disorder [Recovering/Resolving]
  - Nuclear magnetic resonance imaging brain abnormal [Not Recovered/Not Resolved]
